FAERS Safety Report 5968970-8 (Version None)
Quarter: 2008Q4

REPORT INFORMATION
  Report Type: 
  Country: None (occurrence: None)
  Receive Date: 20081126
  Receipt Date: 20081116
  Transmission Date: 20090506
  Serious: Yes (Other)
  Sender: FDA-Public Use
  Company Number: KW-ROCHE-597330

PATIENT
  Sex: Male

DRUGS (1)
  1. XELODA [Suspect]
     Indication: METASTASIS
     Route: 048
     Dates: start: 20080501, end: 20081116

REACTIONS (3)
  - CONJUNCTIVITIS [None]
  - EYE IRRITATION [None]
  - IRIDOCYCLITIS [None]
